FAERS Safety Report 11094162 (Version 1)
Quarter: 2015Q2

REPORT INFORMATION
  Report Type: Report from Study
  Country: ES (occurrence: ES)
  Receive Date: 20150506
  Receipt Date: 20150506
  Transmission Date: 20150821
  Serious: Yes (Hospitalization, Other)
  Sender: FDA-Public Use
  Company Number: ES-GLAXOSMITHKLINE-Z0022371A

PATIENT
  Age: 39 Year
  Sex: Female
  Weight: 54 kg

DRUGS (7)
  1. BLINDED TRAMETINIB [Suspect]
     Active Substance: TRAMETINIB
     Dosage: UNK UNK, BID
     Route: 048
     Dates: start: 20140218, end: 20140322
  2. PLACEBO [Suspect]
     Active Substance: UNSPECIFIED INGREDIENT
     Dosage: UNK UNK, BID
     Route: 048
     Dates: start: 20140218, end: 20140322
  3. PLACEBO [Suspect]
     Active Substance: UNSPECIFIED INGREDIENT
     Dosage: UNK UNK, BID
     Route: 048
     Dates: start: 20140218, end: 20140322
  4. BLINDED DABRAFENIB [Suspect]
     Active Substance: DABRAFENIB
     Dosage: UNK UNK, BID
     Route: 048
     Dates: start: 20140218, end: 20140322
  5. BLINDED DABRAFENIB [Suspect]
     Active Substance: DABRAFENIB
     Dosage: UNK UNK, BID
     Route: 048
     Dates: start: 20140218, end: 20140322
  6. PLACEBO [Suspect]
     Active Substance: UNSPECIFIED INGREDIENT
     Dosage: UNK UNK, BID
     Route: 048
     Dates: start: 20140218, end: 20140322
  7. BLINDED TRAMETINIB [Suspect]
     Active Substance: TRAMETINIB
     Dosage: UNK UNK, BID
     Route: 048
     Dates: start: 20140218, end: 20140322

REACTIONS (3)
  - Hypotension [Recovered/Resolved]
  - Pyrexia [Recovered/Resolved]
  - Chills [Recovered/Resolved]

NARRATIVE: CASE EVENT DATE: 20140322
